FAERS Safety Report 20870991 (Version 3)
Quarter: 2022Q3

REPORT INFORMATION
  Report Type: Report from Study
  Country: US (occurrence: US)
  Receive Date: 20220525
  Receipt Date: 20220721
  Transmission Date: 20221027
  Serious: Yes (Life-Threatening, Hospitalization, Other)
  Sender: FDA-Public Use
  Company Number: US-BRISTOL-MYERS SQUIBB COMPANY-2022-046080

PATIENT
  Age: 41 Year
  Sex: Female
  Weight: 44.8 kg

DRUGS (16)
  1. PACLITAXEL [Suspect]
     Active Substance: PACLITAXEL
     Indication: Squamous cell carcinoma of head and neck
     Route: 042
     Dates: start: 20211109, end: 20211214
  2. TILSOTOLIMOD [Suspect]
     Active Substance: TILSOTOLIMOD
     Indication: Squamous cell carcinoma of head and neck
     Dosage: 1 IN 4 WK
     Route: 036
     Dates: start: 20211109, end: 20220215
  3. BUDIGALIMAB [Suspect]
     Active Substance: BUDIGALIMAB
     Indication: Squamous cell carcinoma of head and neck
     Route: 042
     Dates: start: 20220104, end: 20220201
  4. REVDOFILIMAB [Suspect]
     Active Substance: REVDOFILIMAB
     Indication: Squamous cell carcinoma of head and neck
     Route: 042
     Dates: start: 20211110, end: 20220215
  5. DILAUDID [Concomitant]
     Active Substance: HYDROMORPHONE HYDROCHLORIDE
     Indication: Neck pain
     Route: 042
  6. DILAUDID [Concomitant]
     Active Substance: HYDROMORPHONE HYDROCHLORIDE
     Indication: Headache
  7. NEURONTIN [Concomitant]
     Active Substance: GABAPENTIN
     Indication: Neck pain
     Dosage: 3 IN 1 D
     Route: 048
  8. NEURONTIN [Concomitant]
     Active Substance: GABAPENTIN
     Route: 048
     Dates: start: 20220309
  9. DESYREL [Concomitant]
     Active Substance: TRAZODONE HYDROCHLORIDE
     Indication: Anxiety
     Dosage: 1 IN 1 D
     Route: 048
  10. DESYREL [Concomitant]
     Active Substance: TRAZODONE HYDROCHLORIDE
     Indication: Depression
     Dosage: EVERY NIGHT AT BED TIME
     Route: 048
     Dates: start: 20210516
  11. DESYREL [Concomitant]
     Active Substance: TRAZODONE HYDROCHLORIDE
     Indication: Insomnia
  12. MS CONTIN [Concomitant]
     Active Substance: MORPHINE SULFATE
     Indication: Neck pain
     Dosage: 1 IN 12 HR
     Route: 048
  13. MS CONTIN [Concomitant]
     Active Substance: MORPHINE SULFATE
     Dosage: 1 IN 12 HR
     Route: 048
     Dates: start: 20220309
  14. MARIJUANA GUMMIES [Concomitant]
     Indication: Glossodynia
     Route: 048
     Dates: start: 20200601
  15. MARIJUANA GUMMIES [Concomitant]
     Indication: Anxiety
  16. MARIJUANA GUMMIES [Concomitant]
     Indication: Ear pain

REACTIONS (1)
  - Vascular pseudoaneurysm [Not Recovered/Not Resolved]

NARRATIVE: CASE EVENT DATE: 20220510
